FAERS Safety Report 4949935-1 (Version None)
Quarter: 2006Q1

REPORT INFORMATION
  Report Type: 
  Country: None (occurrence: None)
  Receive Date: 20060127
  Receipt Date: 20050401
  Transmission Date: 20060701
  Serious: Yes (Other)
  Sender: FDA-Public Use
  Company Number: 05-04-0540

PATIENT
  Age: 57 Year
  Sex: Male

DRUGS (3)
  1. CLOZAPINE [Suspect]
     Indication: SCHIZOAFFECTIVE DISORDER
     Dosage: 100-450MG QD, ORAL
     Route: 048
     Dates: start: 20010401, end: 20050301
  2. INTERFERON (INTERFERON) (UNKNOWN) [Suspect]
     Indication: HEPATITIS B
  3. INTERFERON (INTERFERON) (UNKNOWN) [Suspect]
     Indication: HEPATITIS C

REACTIONS (1)
  - NEUTROPENIA [None]
